FAERS Safety Report 9267440 (Version 1)
Quarter: 2013Q2

REPORT INFORMATION
  Report Type: Spontaneous
  Country: US (occurrence: US)
  Receive Date: 20130502
  Receipt Date: 20130502
  Transmission Date: 20140414
  Serious: Yes (Other)
  Sender: FDA-Public Use
  Company Number: US-BRISTOL-MYERS SQUIBB COMPANY-18822288

PATIENT
  Sex: Female

DRUGS (4)
  1. ABILIFY TABS 15 MG [Suspect]
     Indication: BIPOLAR DISORDER
     Dates: start: 2002
  2. RISPERDAL [Suspect]
  3. AMBIEN [Concomitant]
  4. KLONOPIN [Concomitant]

REACTIONS (6)
  - Gastrointestinal disorder [Unknown]
  - Hot flush [Unknown]
  - Blood oestrogen increased [Unknown]
  - Dysphagia [Unknown]
  - Musculoskeletal stiffness [Unknown]
  - Weight increased [Unknown]
